FAERS Safety Report 11174945 (Version 2)
Quarter: 2015Q2

REPORT INFORMATION
  Report Type: Report from Study
  Country: US (occurrence: US)
  Receive Date: 20150609
  Receipt Date: 20150618
  Transmission Date: 20150821
  Serious: Yes (Death, Hospitalization)
  Sender: FDA-Public Use
  Company Number: US-ACTELION-A-US2015-118834

PATIENT
  Age: 43 Year
  Sex: Male

DRUGS (5)
  1. VELETRI [Suspect]
     Active Substance: EPOPROSTENOL
     Indication: PULMONARY ARTERIAL HYPERTENSION
     Dosage: 15.5 NG/KG, PER MIN
     Route: 042
     Dates: start: 20141013
  2. LOVENOX [Concomitant]
     Active Substance: ENOXAPARIN SODIUM
  3. RIOCIGUAT [Concomitant]
     Active Substance: RIOCIGUAT
  4. LASIX [Concomitant]
     Active Substance: FUROSEMIDE
  5. TRACLEER [Concomitant]
     Active Substance: BOSENTAN\BOSENTAN MONOHYDRATE
     Indication: PULMONARY ARTERIAL HYPERTENSION
     Route: 048

REACTIONS (2)
  - Death [Fatal]
  - Seizure [Not Recovered/Not Resolved]

NARRATIVE: CASE EVENT DATE: 20150528
